FAERS Safety Report 19820573 (Version 2)
Quarter: 2021Q3

REPORT INFORMATION
  Report Type: Spontaneous
  Country: CZ (occurrence: CZ)
  Receive Date: 20210913
  Receipt Date: 20210916
  Transmission Date: 20211014
  Serious: Yes (Other)
  Sender: FDA-Public Use
  Company Number: CZ-MYLANLABS-2021M1019932

PATIENT
  Age: 67 Year
  Sex: Male

DRUGS (11)
  1. CABAZITAXEL [Suspect]
     Active Substance: CABAZITAXEL
     Indication: DISEASE PROGRESSION
     Dosage: UNK (UNK, QCY)
     Dates: end: 201505
  2. ENZALUTAMIDE [Concomitant]
     Active Substance: ENZALUTAMIDE
     Indication: DISEASE PROGRESSION
     Dosage: UNK
     Dates: start: 2016
  3. DOCETAXEL. [Suspect]
     Active Substance: DOCETAXEL
     Indication: HORMONE-REFRACTORY PROSTATE CANCER
     Dosage: STANDARD DOSE, Q3W
     Route: 065
  4. CARBOPLATIN W/PACLITAXEL [Concomitant]
     Active Substance: CARBOPLATIN\PACLITAXEL
     Indication: CHEMOTHERAPY
     Dosage: UNK
     Dates: start: 202011
  5. CARBOPLATIN. [Suspect]
     Active Substance: CARBOPLATIN
     Indication: PROSTATE CANCER
     Dosage: UNK
     Dates: start: 202011
  6. CARBOPLATIN. [Suspect]
     Active Substance: CARBOPLATIN
     Indication: HORMONE-REFRACTORY PROSTATE CANCER
  7. CABAZITAXEL [Suspect]
     Active Substance: CABAZITAXEL
     Indication: PROSTATE CANCER
     Dosage: UNK (10 CYCLES, UNTIL MAR?2015)
     Route: 065
     Dates: start: 201409, end: 201503
  8. PACLITAXEL. [Suspect]
     Active Substance: PACLITAXEL
     Indication: PROSTATE CANCER
     Dosage: UNK (5 CYCLES)
     Route: 065
     Dates: start: 202011
  9. ENZALUTAMIDE [Concomitant]
     Active Substance: ENZALUTAMIDE
     Indication: PROSTATE CANCER
     Dosage: UNK UNK, QCY
     Dates: start: 201509
  10. PACLITAXEL. [Suspect]
     Active Substance: PACLITAXEL
     Indication: HORMONE-REFRACTORY PROSTATE CANCER
  11. DOCETAXEL. [Suspect]
     Active Substance: DOCETAXEL
     Indication: PROSTATE CANCER
     Dosage: UNK (EVERY 3 WEEKS, 6 CYCLES TOTAL)
     Route: 065
     Dates: start: 201312

REACTIONS (2)
  - Off label use [Unknown]
  - Neuropathy peripheral [Unknown]

NARRATIVE: CASE EVENT DATE: 2020
